FAERS Safety Report 6479495-8 (Version None)
Quarter: 2009Q4

REPORT INFORMATION
  Report Type: 
  Country: None (occurrence: None)
  Receive Date: 20091207
  Receipt Date: 20091207
  Transmission Date: 20100525
  Serious: No
  Sender: FDA-Public Use
  Company Number: None

PATIENT
  Sex: Female

DRUGS (2)
  1. METOPROLOL TARTRATE [Suspect]
     Indication: DRUG INEFFECTIVE
     Dosage: 50 MG ONE QD PO
     Route: 048
     Dates: start: 20091101
  2. LOPRESSOR [Suspect]

REACTIONS (2)
  - DRUG INEFFECTIVE [None]
  - PRODUCT SUBSTITUTION ISSUE [None]
